FAERS Safety Report 4780946-5 (Version None)
Quarter: 2005Q3

REPORT INFORMATION
  Report Type: 
  Country: None (occurrence: None)
  Receive Date: 20050926
  Receipt Date: 20050912
  Transmission Date: 20060218
  Serious: Yes (Death)
  Sender: FDA-Public Use
  Company Number: CLOF-10027

PATIENT
  Age: 4 Year
  Sex: Male
  Weight: 18 kg

DRUGS (4)
  1. CLOFARABINE [Suspect]
     Indication: ACUTE LYMPHOCYTIC LEUKAEMIA
     Dosage: 52 MG/M2 QD X 5 IV
     Route: 042
     Dates: start: 20050413, end: 20050417
  2. VORICONAZOLE [Concomitant]
  3. CO-TRIMOXAZOLE (TRIMETHOPRIM 40 MG/5 ML) [Concomitant]
  4. ONDANSETRON [Concomitant]

REACTIONS (20)
  - ARRHYTHMIA [None]
  - ASPIRATION [None]
  - ATROPHY [None]
  - BONE MARROW DEPRESSION [None]
  - BRADYCARDIA [None]
  - CARDIAC ARREST [None]
  - CARDIOMEGALY [None]
  - CYANOSIS [None]
  - LYMPHADENOPATHY [None]
  - MITRAL VALVE INCOMPETENCE [None]
  - NECROSIS [None]
  - PERICARDIAL EFFUSION [None]
  - PERITONEAL EFFUSION [None]
  - PLEURAL EFFUSION [None]
  - PULMONARY CONGESTION [None]
  - RENAL TUBULAR NECROSIS [None]
  - SPLEEN DISORDER [None]
  - THYMUS DISORDER [None]
  - TRICUSPID VALVE INCOMPETENCE [None]
  - VENTRICULAR DYSFUNCTION [None]
